FAERS Safety Report 6839211-4 (Version None)
Quarter: 2010Q3

REPORT INFORMATION
  Report Type: 
  Country: None (occurrence: None)
  Receive Date: 20100714
  Receipt Date: 20100630
  Transmission Date: 20110219
  Serious: Yes (Other)
  Sender: FDA-Public Use
  Company Number: NL-BAYER-201031187GPV

PATIENT
  Age: 66 Year
  Sex: Male

DRUGS (2)
  1. RIFAMPICIN [Suspect]
     Indication: MYCOBACTERIUM ULCERANS INFECTION
     Dosage: TOTAL DAILY DOSE: 600 MG
  2. CIPROFLOXACIN [Suspect]
     Indication: MYCOBACTERIUM ULCERANS INFECTION
     Dosage: TOTAL DAILY DOSE: 1000 MG

REACTIONS (1)
  - PARADOXICAL DRUG REACTION [None]
